FAERS Safety Report 4443538-3 (Version None)
Quarter: 2004Q3

REPORT INFORMATION
  Report Type: 
  Country: None (occurrence: None)
  Receive Date: 20040901
  Receipt Date: 20040824
  Transmission Date: 20050211
  Serious: Yes (Hospitalization)
  Sender: FDA-Public Use
  Company Number: ZONI002015

PATIENT
  Age: 83 Year
  Sex: Female

DRUGS (1)
  1. EXCEGRAN (ZONISAMIDE) [Suspect]
     Indication: CONVULSION PROPHYLAXIS
     Dosage: 300 MG, 3 IN 1 D, ORAL
     Route: 048
     Dates: start: 20021101, end: 20040820

REACTIONS (3)
  - HYPERSENSITIVITY [None]
  - RASH [None]
  - URTICARIA [None]
